FAERS Safety Report 9695612 (Version 1)
Quarter: 2013Q4

REPORT INFORMATION
  Report Type: Spontaneous
  Country: DE (occurrence: DE)
  Receive Date: 20131119
  Receipt Date: 20131119
  Transmission Date: 20140711
  Serious: Yes (Other)
  Sender: FDA-Public Use
  Company Number: GXKR2013DE003585

PATIENT
  Age: 92 Year
  Sex: Female
  Weight: 60 kg

DRUGS (4)
  1. OMEP [Suspect]
     Indication: GASTRITIS
     Dosage: 20 MG, QD
     Route: 048
     Dates: start: 20110621, end: 20110702
  2. THIAMAZOL [Concomitant]
     Indication: HYPERTHYROIDISM
     Dosage: 5 MG, UNK
  3. BISOPROLOL [Concomitant]
     Indication: TACHYCARDIA
     Dosage: 2.5 MG, UNK
  4. CALCIMAGON-D3 [Concomitant]
     Indication: OSTEOPOROSIS

REACTIONS (2)
  - Deafness [Recovering/Resolving]
  - Tinnitus [Recovering/Resolving]
